FAERS Safety Report 14747420 (Version 2)
Quarter: 2019Q1

REPORT INFORMATION
  Report Type: Report from Study
  Country: US (occurrence: US)
  Receive Date: 20180411
  Receipt Date: 20190207
  Transmission Date: 20190417
  Serious: Yes (Hospitalization)
  Sender: FDA-Public Use
  Company Number: US-BAUSCH-BL-2018-010072

PATIENT
  Age: 82 Year
  Sex: Female

DRUGS (7)
  1. XIFAXAN [Suspect]
     Active Substance: RIFAXIMIN
     Indication: HEPATIC CIRRHOSIS
     Route: 048
     Dates: start: 2016
  2. PROPRANOLOL [Concomitant]
     Active Substance: PROPRANOLOL HYDROCHLORIDE
     Indication: PRODUCT USED FOR UNKNOWN INDICATION
  3. PANTOPRAZOLE [Concomitant]
     Active Substance: PANTOPRAZOLE
     Indication: PRODUCT USED FOR UNKNOWN INDICATION
  4. XIFAXAN [Suspect]
     Active Substance: RIFAXIMIN
     Dosage: DOSE REDUCED
     Route: 048
     Dates: start: 201901, end: 201901
  5. XIFAXAN [Suspect]
     Active Substance: RIFAXIMIN
     Dosage: SAMPLES RECEIVED ON 1/FEB/2019
     Route: 048
     Dates: start: 201902
  6. LACTULOSE. [Concomitant]
     Active Substance: LACTULOSE
     Indication: PRODUCT USED FOR UNKNOWN INDICATION
  7. URSIDOL [Concomitant]
     Indication: PRODUCT USED FOR UNKNOWN INDICATION

REACTIONS (6)
  - Therapy cessation [Recovered/Resolved]
  - Intentional product use issue [Recovered/Resolved]
  - Condition aggravated [Recovering/Resolving]
  - Ammonia increased [Unknown]
  - Hepatic cirrhosis [Recovering/Resolving]
  - Product distribution issue [Not Recovered/Not Resolved]

NARRATIVE: CASE EVENT DATE: 201804
